FAERS Safety Report 5805814-9 (Version None)
Quarter: 2008Q3

REPORT INFORMATION
  Report Type: 
  Country: None (occurrence: None)
  Receive Date: 20080708
  Receipt Date: 20080708
  Transmission Date: 20090109
  Serious: Yes (Other)
  Sender: FDA-Public Use
  Company Number: None

PATIENT
  Sex: Female
  Weight: 88.4514 kg

DRUGS (5)
  1. ZYRTEC [Suspect]
     Indication: MULTIPLE ALLERGIES
     Dosage: 10MG 1X DAILY PO
     Route: 048
     Dates: start: 20080201, end: 20080625
  2. PROTONIX -OVER THE COUNTER [Concomitant]
  3. ZYRTEC -OVER THE COUNTER- [Concomitant]
  4. PROMETRIUM [Concomitant]
  5. ESTRADIOL [Concomitant]

REACTIONS (8)
  - ALANINE AMINOTRANSFERASE INCREASED [None]
  - ASPARTATE AMINOTRANSFERASE INCREASED [None]
  - ASTHENIA [None]
  - DENTAL CARIES [None]
  - DYSPNOEA [None]
  - GENERALISED OEDEMA [None]
  - HYPERSOMNIA [None]
  - WEIGHT INCREASED [None]
